FAERS Safety Report 10641442 (Version 1)
Quarter: 2014Q4

REPORT INFORMATION
  Report Type: Spontaneous
  Country: GB (occurrence: None)
  Receive Date: 20141208
  Receipt Date: 20141208
  Transmission Date: 20150529
  Serious: Yes (Hospitalization)
  Sender: FDA-Public Use
  Company Number: GB2014GSKL029836

PATIENT
  Age: 28 Year
  Sex: Male
  Weight: 76.2 kg

DRUGS (4)
  1. ABACAVIR + LAMIVUDINE [Suspect]
     Active Substance: ABACAVIR\LAMIVUDINE
     Indication: HIV INFECTION
     Dosage: 1 UNK, UNK, ORAL
     Route: 048
     Dates: start: 20130712
  2. MARAVIROC [Suspect]
     Active Substance: MARAVIROC
     Indication: HIV INFECTION
     Dosage: 150 MG, UNK, ORAL
     Route: 048
     Dates: start: 20130712
  3. DARUNAVIR [Suspect]
     Active Substance: DARUNAVIR
     Indication: HIV INFECTION
     Dosage: 800 MG, UNK, ORAL
     Route: 048
     Dates: start: 20130712
  4. RITONAVIR (RITONAVIR) UNKNOWN [Suspect]
     Active Substance: RITONAVIR
     Indication: HIV INFECTION
     Dosage: 100 MG, UNK, ORAL
     Route: 048
     Dates: start: 20130712

REACTIONS (2)
  - Gastritis [None]
  - Gastrooesophageal reflux disease [None]

NARRATIVE: CASE EVENT DATE: 20130808
